FAERS Safety Report 13796292 (Version 1)
Quarter: 2017Q3

REPORT INFORMATION
  Report Type: Other
  Country: US (occurrence: US)
  Receive Date: 20170726
  Receipt Date: 20170726
  Transmission Date: 20171127
  Serious: Yes (Other)
  Sender: FDA-Public Use
  Company Number: US-THE PROACTIV LLC-2023825

PATIENT
  Age: 39 Year
  Sex: Female

DRUGS (5)
  1. PROACTIVPLUS SKIN SMOOTHING EXFOLIATOR [Suspect]
     Active Substance: BENZOYL PEROXIDE
     Indication: ACNE
     Route: 061
     Dates: start: 20170522, end: 20170613
  2. VITAMINS [Concomitant]
     Active Substance: VITAMINS
  3. HEART BURN MEDICATION [Concomitant]
  4. PROACTIV QUICK FIX BLEMISH PEN [Suspect]
     Active Substance: SULFUR
     Route: 061
     Dates: start: 20170522, end: 20170613
  5. PROACTIV PLUS CLEANSING BODY BAR [Suspect]
     Active Substance: SALICYLIC ACID
     Route: 061
     Dates: start: 20170522, end: 20170613

REACTIONS (9)
  - Chapped lips [None]
  - Angioedema [Recovered/Resolved]
  - Application site erythema [None]
  - Application site irritation [None]
  - Eye swelling [None]
  - Wrong technique in product usage process [None]
  - Application site swelling [None]
  - Lip swelling [None]
  - Lip erythema [None]

NARRATIVE: CASE EVENT DATE: 20170613
